FAERS Safety Report 4964380-0 (Version None)
Quarter: 2006Q2

REPORT INFORMATION
  Report Type: 
  Country: None (occurrence: None)
  Receive Date: 20060406
  Receipt Date: 20060327
  Transmission Date: 20061013
  Serious: Yes (Hospitalization)
  Sender: FDA-Public Use
  Company Number: PHBS2006IT04784

PATIENT
  Age: 52 Year
  Sex: Female

DRUGS (4)
  1. LIORESAL [Suspect]
     Indication: ALCOHOLISM
     Dosage: 37.5 MG/DAY
     Route: 048
     Dates: start: 20040414, end: 20060207
  2. SEREPRILE [Suspect]
     Indication: ALCOHOLISM
     Dosage: 300 MG/DAY
     Route: 048
     Dates: start: 20040414
  3. NALOREX [Suspect]
     Indication: ALCOHOLISM
     Dosage: 50 MG/DAY
     Route: 048
     Dates: start: 20040622, end: 20060207
  4. VASERETIC [Concomitant]
     Indication: HYPERTENSION
     Dosage: 1 POSOLOGIC UNIT
     Route: 048
     Dates: start: 20040211

REACTIONS (3)
  - ANAEMIA [None]
  - HAEMOGLOBIN DECREASED [None]
  - MOUTH HAEMORRHAGE [None]
